FAERS Safety Report 8321279-X (Version None)
Quarter: 2012Q2

REPORT INFORMATION
  Report Type: 
  Country: None (occurrence: None)
  Receive Date: 20120430
  Receipt Date: 20120415
  Transmission Date: 20120825
  Serious: Yes (Hospitalization, Other)
  Sender: FDA-Public Use
  Company Number: BR-TEVA-319255ISR

PATIENT
  Age: 6 Decade
  Sex: Male

DRUGS (5)
  1. AMANTADINE HCL [Concomitant]
     Indication: PARKINSON'S DISEASE
     Dosage: 200 MILLIGRAM;
     Route: 065
  2. CLONAZEPAM [Concomitant]
     Dosage: 2 MILLIGRAM; AT BEDTIME
     Route: 065
  3. CARBIDOPA AND LEVODOPA [Suspect]
     Indication: PARKINSON'S DISEASE
     Dosage: LEVODOPA/CARBIDOPA 250/25MG PER TABLET; UP TO 12TABS/DAY APPROX 12Y AFTER DIAGNOSIS
     Route: 048
  4. LEVODOPA [Suspect]
     Indication: PARKINSON'S DISEASE
     Route: 065
  5. AMITRIPTYLINE HCL [Concomitant]
     Indication: DEPRESSIVE SYMPTOM
     Dosage: 25MG 2 TABLET BD
     Route: 048

REACTIONS (2)
  - DOPAMINE DYSREGULATION SYNDROME [None]
  - INTENTIONAL OVERDOSE [None]
